FAERS Safety Report 6956413-7 (Version None)
Quarter: 2010Q3

REPORT INFORMATION
  Report Type: 
  Country: None (occurrence: None)
  Receive Date: 20100830
  Receipt Date: 20100820
  Transmission Date: 20110219
  Serious: Yes (Hospitalization)
  Sender: FDA-Public Use
  Company Number: B0668898A

PATIENT
  Sex: Female
  Weight: 75 kg

DRUGS (7)
  1. LAPATINIB [Suspect]
     Indication: BREAST CANCER
     Dosage: 1000MG PER DAY
     Route: 048
     Dates: start: 20100429
  2. DOCETAXEL [Suspect]
     Indication: BREAST CANCER
     Dosage: 190MG EVERY 3 WEEKS
     Route: 042
     Dates: start: 20100722
  3. EPIRUBICIN [Suspect]
     Indication: BREAST CANCER
     Dosage: 171MG EVERY 3 WEEKS
     Route: 042
     Dates: start: 20100429
  4. CYCLOPHOSPHAMIDE [Suspect]
     Indication: BREAST CANCER
     Dosage: 1140MG EVERY 3 WEEKS
     Route: 042
     Dates: start: 20100429
  5. DEXAMETHASONE [Suspect]
     Route: 048
     Dates: start: 20100722
  6. GRANISETRON HCL [Concomitant]
     Dosage: 2MG EVERY 3 WEEKS
     Dates: start: 20100722, end: 20100722
  7. CEC [Concomitant]
     Dates: start: 20100701

REACTIONS (3)
  - ACUTE PSYCHOSIS [None]
  - PERSONALITY CHANGE [None]
  - SUICIDE ATTEMPT [None]
